FAERS Safety Report 10277536 (Version 2)
Quarter: 2014Q3

REPORT INFORMATION
  Report Type: Spontaneous
  Country: US (occurrence: US)
  Receive Date: 20140703
  Receipt Date: 20140808
  Transmission Date: 20150326
  Serious: Yes (Other)
  Sender: FDA-Public Use
  Company Number: US-GLAXOSMITHKLINE-A1058716A

PATIENT
  Age: 61 Year
  Sex: Male

DRUGS (5)
  1. CELEBREX [Concomitant]
     Active Substance: CELECOXIB
  2. FLOMAX [Concomitant]
     Active Substance: TAMSULOSIN HYDROCHLORIDE
  3. NEURONTIN [Concomitant]
     Active Substance: GABAPENTIN
  4. LAMICTAL XR [Suspect]
     Active Substance: LAMOTRIGINE
     Indication: ANXIETY
     Dosage: 300MG UNKNOWN
     Route: 065
     Dates: start: 20120703
  5. LAMICTAL [Suspect]
     Active Substance: LAMOTRIGINE
     Indication: PRODUCT USED FOR UNKNOWN INDICATION
     Dosage: 150MG UNKNOWN
     Route: 065
     Dates: start: 20070628

REACTIONS (5)
  - Ill-defined disorder [Unknown]
  - Prostatic specific antigen increased [Not Recovered/Not Resolved]
  - Prostatomegaly [Unknown]
  - Prostate cancer [Not Recovered/Not Resolved]
  - Anxiety [Not Recovered/Not Resolved]
